FAERS Safety Report 6786898-0 (Version None)
Quarter: 2010Q2

REPORT INFORMATION
  Report Type: 
  Country: None (occurrence: None)
  Receive Date: 20100621
  Receipt Date: 20100611
  Transmission Date: 20101027
  Serious: Yes (Other)
  Sender: FDA-Public Use
  Company Number: DKLU1062689

PATIENT
  Age: 47 Month
  Sex: Female

DRUGS (15)
  1. ELSPAR [Suspect]
     Indication: B-CELL TYPE ACUTE LEUKAEMIA
  2. PREDNISONE TAB [Suspect]
     Indication: ACUTE LYMPHOCYTIC LEUKAEMIA
     Dosage: 1120 MG/M2 MILLIGRAM(S) /SQ.METER
     Route: 058
  3. PREDNISONE TAB [Suspect]
     Indication: B-CELL TYPE ACUTE LEUKAEMIA
     Dosage: 1120 MG/M2 MILLIGRAM(S) /SQ.METER
     Route: 058
  4. PREDNISONE TAB [Suspect]
     Indication: LEUKAEMIA
     Dosage: 1120 MG/M2 MILLIGRAM(S) /SQ.METER
     Route: 058
  5. DEXAMETHASONE [Suspect]
     Indication: ACUTE LYMPHOCYTIC LEUKAEMIA
     Dosage: 870 MG/M2 MILLIGRAM (S)/ SQ.METER
     Route: 058
  6. DEXAMETHASONE [Suspect]
     Indication: B-CELL TYPE ACUTE LEUKAEMIA
     Dosage: 870 MG/M2 MILLIGRAM (S)/ SQ.METER
     Route: 058
  7. CYCLOPHOSPHAMIDE [Suspect]
     Dosage: 4000 MG/M2 MILLIGRAM(S)/SQ.METER
     Route: 058
  8. CYTARABINE [Suspect]
     Dosage: 2100 MG/M2 MILLIGRAM(S)/ SQ.METER
     Route: 058
  9. DAUNO/DOXORUBICIN (DAUNORUBICIN) [Suspect]
     Dosage: 240 MG/M2 MILLIGRAM(S)/SQ.METER
     Route: 058
  10. METHOTREXATE [Suspect]
     Dosage: 1200 MG/M2 MILLIGRAM(S) /SQ.METER, INTRAVENOUS (NOT OTHERWISE SPECIFIED)
     Route: 058
  11. MERCAPTOPURINE [Suspect]
     Dosage: 40980 MG/M2 MILLIGRAM (S) /SQ.METER
     Route: 058
  12. VINCRISTINE [Suspect]
     Dosage: 73.5 MG/M2 MILLIGRAM (S) /SQ.METER
     Route: 058
  13. THIOGUANINE [Suspect]
     Dosage: 1680 MG/M2 MILLIGRAM(S) /SQ.METER
     Route: 058
  14. METHOTREXATE [Suspect]
     Dosage: 20 DOSES, INTRATHECAL
     Route: 037
  15. CRANIAL RADIATION [Suspect]
     Dosage: 9 FRACTIONS RADATION

REACTIONS (4)
  - FEBRILE NEUTROPENIA [None]
  - HAEMOGLOBIN DECREASED [None]
  - PLATELET COUNT DECREASED [None]
  - WHITE BLOOD CELL COUNT INCREASED [None]
